FAERS Safety Report 8892203 (Version 1)
Quarter: 2012Q4

REPORT INFORMATION
  Report Type: Spontaneous
  Country: US (occurrence: None)
  Receive Date: 20121105
  Receipt Date: 20121105
  Transmission Date: 20130627
  Serious: Yes (Life-Threatening, Hospitalization)
  Sender: FDA-Public Use
  Company Number: None

PATIENT
  Age: 54 Year
  Sex: Female
  Weight: 66.23 kg

DRUGS (2)
  1. NUVARING [Suspect]
     Indication: BIRTH CONTROL
     Dates: start: 20081001, end: 20121026
  2. NUVARING [Suspect]
     Dates: start: 20081001, end: 20121026

REACTIONS (2)
  - Deep vein thrombosis [None]
  - Pulmonary embolism [None]
